FAERS Safety Report 5103204-8 (Version None)
Quarter: 2006Q3

REPORT INFORMATION
  Report Type: 
  Country: None (occurrence: None)
  Receive Date: 20060912
  Receipt Date: 20060912
  Transmission Date: 20061208
  Serious: Yes (Other)
  Sender: FDA-Public Use
  Company Number: None

PATIENT
  Age: 10 Year
  Sex: Female

DRUGS (3)
  1. TRILEPTAL [Suspect]
     Indication: CYCLOTHYMIC DISORDER
     Dosage: 150 MG AN + 300 MG HS PO
     Route: 048
     Dates: start: 20060824, end: 20060908
  2. ZOLOFT [Concomitant]
  3. CONCERTA [Concomitant]

REACTIONS (1)
  - HALLUCINATION, AUDITORY [None]
